FAERS Safety Report 8395807-2 (Version None)
Quarter: 2012Q2

REPORT INFORMATION
  Report Type: 
  Country: None (occurrence: None)
  Receive Date: 20120530
  Receipt Date: 20120524
  Transmission Date: 20120825
  Serious: Yes (Hospitalization)
  Sender: FDA-Public Use
  Company Number: FR-US-EMD SERONO, INC.-7095895

PATIENT
  Sex: Female

DRUGS (1)
  1. REBIF [Suspect]
     Indication: MULTIPLE SCLEROSIS
     Route: 058
     Dates: start: 20090101, end: 20120319

REACTIONS (5)
  - IRRITABILITY [None]
  - STRESS [None]
  - ANXIETY [None]
  - DECREASED APPETITE [None]
  - MYOCARDIAL INFARCTION [None]
